FAERS Safety Report 6838611-6 (Version None)
Quarter: 2010Q3

REPORT INFORMATION
  Report Type: 
  Country: None (occurrence: None)
  Receive Date: 20100709
  Receipt Date: 20100628
  Transmission Date: 20110219
  Serious: No
  Sender: FDA-Public Use
  Company Number: 013622

PATIENT
  Sex: Female

DRUGS (5)
  1. NEUPRO [Suspect]
     Indication: PARKINSON'S DISEASE
     Dosage: TRANSDERMAL, 2 MG QD TRANSDERMAL
     Route: 062
     Dates: start: 20000606, end: 20080703
  2. CABERGOLINE [Concomitant]
  3. SINEMET [Concomitant]
  4. SELEGILINE [Concomitant]
  5. BENZHEXOL /00002602/ [Concomitant]

REACTIONS (2)
  - APPLICATION SITE REACTION [None]
  - METASTATIC SQUAMOUS CELL CARCINOMA [None]
